FAERS Safety Report 24637780 (Version 2)
Quarter: 2025Q1

REPORT INFORMATION
  Report Type: Spontaneous
  Country: US (occurrence: US)
  Receive Date: 20241119
  Receipt Date: 20250127
  Transmission Date: 20250409
  Serious: No
  Sender: ROCHE
  Company Number: US-ROCHE-10000134641

PATIENT
  Sex: Male
  Weight: 89.81 kg

DRUGS (3)
  1. HEMLIBRA [Suspect]
     Active Substance: EMICIZUMAB-KXWH
     Indication: Factor VIII deficiency
     Dosage: STRENGTH- 150MG/ML
     Route: 058
     Dates: start: 202311
  2. HEMLIBRA [Suspect]
     Active Substance: EMICIZUMAB-KXWH
     Dosage: STRENGTH- 150MG/ML
     Route: 058
     Dates: start: 202311
  3. advate inection [Concomitant]

REACTIONS (5)
  - Haemorrhage [Unknown]
  - Off label use [Unknown]
  - Haemorrhage [Unknown]
  - Injury [Unknown]
  - Off label use [Unknown]
